FAERS Safety Report 14228566 (Version 1)
Quarter: 2017Q4

REPORT INFORMATION
  Report Type: Spontaneous
  Country: RU (occurrence: RU)
  Receive Date: 20171128
  Receipt Date: 20171128
  Transmission Date: 20180321
  Serious: Yes (Other)
  Sender: FDA-Public Use
  Company Number: RU-ASTRAZENECA-2017SF20090

PATIENT
  Age: 68 Year
  Sex: Female
  Weight: 59 kg

DRUGS (4)
  1. FORXIGA [Suspect]
     Active Substance: DAPAGLIFLOZIN
     Indication: TYPE 2 DIABETES MELLITUS
     Route: 048
  2. AMLODIPIN [Concomitant]
     Active Substance: AMLODIPINE BESYLATE
  3. LISINOPRIL. [Concomitant]
     Active Substance: LISINOPRIL
  4. GLICLAZIDE [Concomitant]
     Active Substance: GLICLAZIDE

REACTIONS (1)
  - Ischaemic stroke [Recovered/Resolved with Sequelae]

NARRATIVE: CASE EVENT DATE: 201610
